FAERS Safety Report 7015762-7 (Version None)
Quarter: 2010Q3

REPORT INFORMATION
  Report Type: 
  Country: None (occurrence: None)
  Receive Date: 20100927
  Receipt Date: 20100122
  Transmission Date: 20110219
  Serious: No
  Sender: FDA-Public Use
  Company Number: US-ASTRAZENECA-2010SE03151

PATIENT
  Age: 50 Year
  Sex: Female
  Weight: 74.8 kg

DRUGS (4)
  1. ARIMIDEX [Suspect]
     Route: 048
  2. NEXIUM [Concomitant]
     Dosage: DAILY
     Route: 048
  3. PROMETHAZINE [Concomitant]
  4. BENTYL [Concomitant]

REACTIONS (3)
  - ASTHENIA [None]
  - DISTURBANCE IN ATTENTION [None]
  - NAUSEA [None]
